FAERS Safety Report 8592000 (Version 2)
Quarter: 2013Q2

REPORT INFORMATION
  Report Type: Spontaneous
  Country: US (occurrence: US)
  Receive Date: 20120601
  Receipt Date: 20130523
  Transmission Date: 20140414
  Serious: Yes (Congenital Anomaly, Other)
  Sender: FDA-Public Use
  Company Number: US-PFIZER INC-2012128666

PATIENT
  Sex: Female
  Weight: 2.74 kg

DRUGS (5)
  1. ZOLOFT [Suspect]
     Indication: ANXIETY
     Dosage: UNK
     Route: 064
     Dates: start: 20060124
  2. ZOLOFT [Suspect]
     Indication: DEPRESSION
  3. PRENATAL VITAMINS [Concomitant]
     Dosage: UNK
     Route: 064
     Dates: start: 20080324
  4. SERTRALINE [Concomitant]
     Dosage: 50 MG, 1X/DAY
     Route: 064
  5. ZYRTEC [Concomitant]
     Dosage: UNK
     Route: 064

REACTIONS (3)
  - Maternal exposure timing unspecified [Unknown]
  - Talipes [Unknown]
  - Premature baby [Unknown]
